FAERS Safety Report 25238375 (Version 1)
Quarter: 2025Q2

REPORT INFORMATION
  Report Type: Spontaneous
  Country: US (occurrence: US)
  Receive Date: 20250425
  Receipt Date: 20250425
  Transmission Date: 20250716
  Serious: No
  Sender: Kenvue
  Company Number: US-KENVUE-20250309367

PATIENT
  Sex: Female

DRUGS (15)
  1. IMODIUM [Suspect]
     Active Substance: LOPERAMIDE HYDROCHLORIDE
     Indication: Diarrhoea
     Route: 065
  2. ORENITRAM [Concomitant]
     Active Substance: TREPROSTINIL
     Indication: Pulmonary arterial hypertension
     Dosage: 1.25 MILLIGRAM, THRICE A DAY
     Route: 048
     Dates: start: 202103
  3. TREPROSTINIL [Concomitant]
     Active Substance: TREPROSTINIL
     Indication: Pulmonary arterial hypertension
     Dosage: 2.75 MILLIGRAM, THRICE A DAY
     Route: 048
  4. TREPROSTINIL [Concomitant]
     Active Substance: TREPROSTINIL
     Route: 048
     Dates: end: 2024
  5. TREPROSTINIL [Concomitant]
     Active Substance: TREPROSTINIL
     Dosage: 1.5 MILLIGRAM, THRICE A DAY
     Route: 048
     Dates: start: 202408, end: 2024
  6. TREPROSTINIL [Concomitant]
     Active Substance: TREPROSTINIL
     Dosage: 1.5 MILLIGRAM, THRICE A DAY
     Route: 048
     Dates: start: 202409, end: 2024
  7. TREPROSTINIL [Concomitant]
     Active Substance: TREPROSTINIL
     Route: 048
     Dates: start: 2024, end: 2024
  8. TREPROSTINIL [Concomitant]
     Active Substance: TREPROSTINIL
     Dosage: 2.25 MILLIGRAM, THRICE A DAY
     Route: 048
     Dates: start: 2024, end: 2024
  9. TREPROSTINIL [Concomitant]
     Active Substance: TREPROSTINIL
     Route: 048
     Dates: start: 20241229, end: 20250101
  10. TREPROSTINIL [Concomitant]
     Active Substance: TREPROSTINIL
     Dosage: 2.25 MILLIGRAM, THRICE A DAY
     Route: 048
     Dates: start: 20250101, end: 202501
  11. TREPROSTINIL [Concomitant]
     Active Substance: TREPROSTINIL
     Dosage: 2.5 MILLIGRAM, THRICE A DAY
     Route: 048
     Dates: start: 202501
  12. TREPROSTINIL [Concomitant]
     Active Substance: TREPROSTINIL
     Route: 048
     Dates: start: 202103
  13. SILDENAFIL CITRATE [Concomitant]
     Active Substance: SILDENAFIL CITRATE
     Indication: Product used for unknown indication
     Route: 065
  14. AMBRISENTAN [Concomitant]
     Active Substance: AMBRISENTAN
     Indication: Product used for unknown indication
     Route: 065
  15. SOTATERCEPT [Concomitant]
     Active Substance: SOTATERCEPT
     Indication: Product used for unknown indication
     Route: 065

REACTIONS (1)
  - Flatulence [Unknown]
